FAERS Safety Report 10416290 (Version 1)
Quarter: 2014Q3

REPORT INFORMATION
  Report Type: Spontaneous
  Country: CA (occurrence: CA)
  Receive Date: 20140828
  Receipt Date: 20140828
  Transmission Date: 20150326
  Serious: Yes (Hospitalization)
  Sender: FDA-Public Use
  Company Number: CA-009507513-1408CAN012487

PATIENT
  Sex: Female

DRUGS (2)
  1. POSANOL [Concomitant]
     Active Substance: POSACONAZOLE
     Route: 065
  2. TEMODAL [Suspect]
     Active Substance: TEMOZOLOMIDE
     Indication: FUNGAL INFECTION
     Dosage: UNK
     Route: 065

REACTIONS (1)
  - Bone marrow transplant [Unknown]

NARRATIVE: CASE EVENT DATE: 2014
